FAERS Safety Report 4436942-0 (Version None)
Quarter: 2004Q3

REPORT INFORMATION
  Report Type: 
  Country: None (occurrence: None)
  Receive Date: 20040827
  Receipt Date: 20040816
  Transmission Date: 20050211
  Serious: Yes (Hospitalization, Other)
  Sender: FDA-Public Use
  Company Number: T04-USA-03758-01

PATIENT
  Age: 77 Year
  Sex: Female
  Weight: 66.2252 kg

DRUGS (6)
  1. MEMANTINE HCL [Suspect]
     Indication: POST HERPETIC NEURALGIA
     Dosage: 5 CAPSULE QD PO
     Route: 048
     Dates: start: 20040616, end: 20040814
  2. PLACEBO (SINGLE BLIND) [Suspect]
     Indication: POST HERPETIC NEURALGIA
     Dosage: 2 CAPSULES TID PO
     Route: 048
  3. SYNTHROID [Concomitant]
  4. FOSAMAX [Concomitant]
  5. ALTACE [Concomitant]
  6. HYDROCHLOROTHIAZIDE [Concomitant]

REACTIONS (4)
  - BALANCE DISORDER [None]
  - CONFUSIONAL STATE [None]
  - DYSPHAGIA [None]
  - MENTAL IMPAIRMENT [None]
